FAERS Safety Report 10857021 (Version 1)
Quarter: 2015Q1

REPORT INFORMATION
  Report Type: Spontaneous
  Country: US (occurrence: US)
  Receive Date: 20150223
  Receipt Date: 20150223
  Transmission Date: 20150721
  Serious: No
  Sender: FDA-Public Use
  Company Number: US-BAYER-2015-026955

PATIENT
  Age: 87 Year
  Sex: Female
  Weight: 63 kg

DRUGS (7)
  1. ALEVE [Suspect]
     Active Substance: NAPROXEN SODIUM
     Indication: PAIN
  2. BAYER WOMEN^S LOW DOSE ASPIRIN 81 MG WITH CALCIUM [Concomitant]
     Indication: ISCHAEMIC HEART DISEASE PROPHYLAXIS
     Dosage: 1 DF, QD
  3. CALCIUM [Concomitant]
     Active Substance: CALCIUM
  4. LISINOPRIL. [Concomitant]
     Active Substance: LISINOPRIL
  5. DIAZEPAM. [Concomitant]
     Active Substance: DIAZEPAM
  6. ALEVE [Suspect]
     Active Substance: NAPROXEN SODIUM
     Indication: ARTHRALGIA
     Dosage: 1 DF, UNK
     Route: 048
  7. PRAVASTATIN [Concomitant]
     Active Substance: PRAVASTATIN\PRAVASTATIN SODIUM

REACTIONS (2)
  - Expired product administered [Unknown]
  - Incorrect drug administration duration [Unknown]

NARRATIVE: CASE EVENT DATE: 2013
